FAERS Safety Report 10563042 (Version 2)
Quarter: 2014Q4

REPORT INFORMATION
  Report Type: Spontaneous
  Country: PT (occurrence: PT)
  Receive Date: 20141104
  Receipt Date: 20141114
  Transmission Date: 20150529
  Serious: Yes (Other)
  Sender: FDA-Public Use
  Company Number: PT-PFIZER INC-2014302010

PATIENT
  Age: 67 Year
  Sex: Male
  Weight: 74 kg

DRUGS (9)
  1. SUTENT [Suspect]
     Active Substance: SUNITINIB MALATE
     Indication: RENAL CELL CARCINOMA
     Dosage: 25 MG, 1X/DAY
     Route: 048
     Dates: start: 20141021, end: 20141022
  2. CLOPIDOGREL FARMOZ [Concomitant]
     Dosage: 75 MG, UNK
     Route: 048
  3. CANDESARTAN CILEXETIL/HYDROCHLOORTHIAZIDE [Concomitant]
     Dosage: 16 MG+12.5 MG
     Route: 048
  4. ATENOLOL RATIOPHARM [Concomitant]
     Dosage: 50 MG, UNK
     Route: 048
  5. AMLODIPINA CINFA [Concomitant]
     Indication: CARDIAC FAILURE
     Dosage: 5 MG, UNK
     Route: 048
  6. INEGY [Concomitant]
     Active Substance: EZETIMIBE\SIMVASTATIN
     Dosage: 10 MG+ 20 MG
     Route: 048
  7. ASPIRINA GR [Concomitant]
     Dosage: 100 MG, UNK
     Route: 048
  8. PERINDOPRIL FARMOZ [Concomitant]
     Dosage: 8 MG, 1X/DAY
     Route: 048
  9. LANTUS [Concomitant]
     Active Substance: INSULIN GLARGINE
     Indication: TYPE 2 DIABETES MELLITUS
     Dosage: 100 IU/ML, UNK
     Route: 058

REACTIONS (4)
  - Rash papular [Recovered/Resolved]
  - Eye oedema [Recovered/Resolved]
  - Rash pruritic [Recovered/Resolved]
  - Lip oedema [Recovered/Resolved]

NARRATIVE: CASE EVENT DATE: 20141021
